FAERS Safety Report 9754656 (Version 2)
Quarter: 2014Q1

REPORT INFORMATION
  Report Type: Spontaneous
  Country: US (occurrence: US)
  Receive Date: 20131213
  Receipt Date: 20140311
  Transmission Date: 20141002
  Serious: Yes (Death, Other)
  Sender: FDA-Public Use
  Company Number: US-PFIZER INC-2013356050

PATIENT
  Age: 66 Year
  Sex: Female
  Weight: 127 kg

DRUGS (3)
  1. LIPITOR [Suspect]
     Indication: HYPERCHOLESTEROLAEMIA
     Dosage: 40 MG, DAILY
     Route: 048
     Dates: start: 20111122
  2. ACCURETIC [Suspect]
     Indication: HYPERTENSION
     Dosage: 20/25MG DAILY
     Route: 048
     Dates: start: 20111005
  3. ZOLOFT [Suspect]
     Dosage: 100 MG, DAILY
     Dates: start: 20120520

REACTIONS (3)
  - Death [Fatal]
  - Intestinal perforation [Unknown]
  - Sepsis [Unknown]
